FAERS Safety Report 9361332 (Version 1)
Quarter: 2013Q2

REPORT INFORMATION
  Report Type: Spontaneous
  Country: IN (occurrence: IN)
  Receive Date: 20130621
  Receipt Date: 20130628
  Transmission Date: 20140414
  Serious: Yes (Other)
  Sender: FDA-Public Use
  Company Number: IN-SANOFI-AVENTIS-2013SA061960

PATIENT
  Age: 65 Year
  Sex: Female

DRUGS (5)
  1. AMLODIPINE (SALT NOT SPECIFIED) [Suspect]
     Indication: PRODUCT USED FOR UNKNOWN INDICATION
     Route: 065
  2. CLOPIDOGREL BISULFATE [Interacting]
     Indication: PRODUCT USED FOR UNKNOWN INDICATION
     Route: 065
  3. ATORVASTATIN [Interacting]
     Indication: PRODUCT USED FOR UNKNOWN INDICATION
     Route: 065
  4. FRUSEMIDE [Concomitant]
  5. INSULIN [Concomitant]

REACTIONS (24)
  - Rhabdomyolysis [Recovering/Resolving]
  - Drug interaction [Unknown]
  - Myalgia [Recovering/Resolving]
  - Myalgia [Recovering/Resolving]
  - Blood creatine phosphokinase increased [Recovered/Resolved]
  - Blood uric acid increased [Recovering/Resolving]
  - Myoglobin urine present [Recovering/Resolving]
  - Aspartate aminotransferase increased [Recovered/Resolved]
  - Alanine aminotransferase increased [Recovering/Resolving]
  - Posture abnormal [Recovering/Resolving]
  - Gait disturbance [Recovering/Resolving]
  - Hyporeflexia [Recovered/Resolved]
  - Renal failure acute [Recovering/Resolving]
  - Local swelling [Recovering/Resolving]
  - Face oedema [Recovering/Resolving]
  - Nausea [Recovering/Resolving]
  - Decreased appetite [Recovering/Resolving]
  - Urine output decreased [Recovering/Resolving]
  - Chromaturia [Recovering/Resolving]
  - Blood creatinine increased [Recovering/Resolving]
  - Blood urea increased [Recovering/Resolving]
  - Blood alkaline phosphatase increased [Recovering/Resolving]
  - Blood phosphorus increased [Recovering/Resolving]
  - Blood calcium decreased [Recovering/Resolving]
